FAERS Safety Report 6392326-X (Version None)
Quarter: 2009Q4

REPORT INFORMATION
  Report Type: 
  Country: None (occurrence: None)
  Receive Date: 20091007
  Receipt Date: 20090923
  Transmission Date: 20100525
  Serious: Yes (Hospitalization)
  Sender: FDA-Public Use
  Company Number: PHEH2009US12134

PATIENT
  Sex: Female

DRUGS (1)
  1. EXJADE [Suspect]
     Dosage: 3000MG DAILY
     Route: 048

REACTIONS (2)
  - DEVICE RELATED SEPSIS [None]
  - STAPHYLOCOCCAL SEPSIS [None]
